FAERS Safety Report 7949799-8 (Version None)
Quarter: 2011Q4

REPORT INFORMATION
  Report Type: 
  Country: None (occurrence: None)
  Receive Date: 20111130
  Receipt Date: 20111116
  Transmission Date: 20120403
  Serious: Yes (Life-Threatening, Hospitalization)
  Sender: FDA-Public Use
  Company Number: CM-MERCK-1108USA01094

PATIENT
  Age: 41 Year
  Sex: Male

DRUGS (2)
  1. STROMECTOL [Suspect]
     Indication: FILARIASIS LYMPHATIC
     Route: 048
     Dates: start: 20110907
  2. ALBENDAZOLE [Suspect]
     Indication: FILARIASIS LYMPHATIC
     Route: 048
     Dates: start: 20110907

REACTIONS (7)
  - ASTHENIA [None]
  - ENCEPHALOPATHY [None]
  - DECUBITUS ULCER [None]
  - DIARRHOEA [None]
  - DEPRESSED LEVEL OF CONSCIOUSNESS [None]
  - COMA [None]
  - PYREXIA [None]
